FAERS Safety Report 7556784-7 (Version None)
Quarter: 2011Q2

REPORT INFORMATION
  Report Type: 
  Country: None (occurrence: None)
  Receive Date: 20110610
  Receipt Date: 20110601
  Transmission Date: 20111010
  Serious: Yes (Hospitalization)
  Sender: FDA-Public Use
  Company Number: 2010SP032251

PATIENT
  Age: 23 Year
  Sex: Female
  Weight: 81.6475 kg

DRUGS (11)
  1. BUSPIRONE HCL [Concomitant]
  2. NUVARING [Suspect]
     Indication: WEIGHT INCREASED
     Dates: start: 20080301, end: 20080601
  3. NUVARING [Suspect]
     Indication: CONTRACEPTION
     Dates: start: 20080301, end: 20080601
  4. FLONASE [Concomitant]
  5. TOPROL-XL [Concomitant]
  6. SINGULAIR [Concomitant]
  7. TYLENOL-500 [Concomitant]
  8. ASTELIN [Concomitant]
  9. COUMADIN [Suspect]
     Indication: ANTICOAGULANT THERAPY
     Dates: start: 20080610
  10. ADVAIR DISKUS 100/50 [Concomitant]
  11. CELEXA [Concomitant]

REACTIONS (9)
  - HYPOKALAEMIA [None]
  - ABORTION SPONTANEOUS [None]
  - JOINT INJURY [None]
  - DEEP VEIN THROMBOSIS [None]
  - INFECTION [None]
  - HEADACHE [None]
  - DRUG EXPOSURE BEFORE PREGNANCY [None]
  - HYPOTENSION [None]
  - VENOUS INSUFFICIENCY [None]
